FAERS Safety Report 25460665 (Version 1)
Quarter: 2025Q2

REPORT INFORMATION
  Report Type: Spontaneous
  Country: CN (occurrence: CN)
  Receive Date: 20250620
  Receipt Date: 20250620
  Transmission Date: 20250717
  Serious: Yes (Hospitalization, Other)
  Sender: TAKEDA
  Company Number: CN-HUTCHMED LIMITED-HMP2025CN01470

PATIENT
  Age: 68 Year
  Sex: Male
  Weight: 75 kg

DRUGS (1)
  1. FRUQUINTINIB [Suspect]
     Active Substance: FRUQUINTINIB
     Indication: Rectal cancer
     Dosage: 5 MILLIGRAM, QD
     Dates: start: 20250503, end: 20250609

REACTIONS (1)
  - Anal abscess [Recovering/Resolving]

NARRATIVE: CASE EVENT DATE: 20250508
